FAERS Safety Report 12369488 (Version 1)
Quarter: 2016Q2

REPORT INFORMATION
  Report Type: Spontaneous
  Country: US (occurrence: None)
  Receive Date: 20160513
  Receipt Date: 20160513
  Transmission Date: 20160815
  Serious: No
  Sender: FDA-Public Use
  Company Number: None

PATIENT
  Sex: Female

DRUGS (2)
  1. LANTAPROST OPTHALMIC SANDOZ [Suspect]
     Active Substance: LATANOPROST
  2. TRAVOPROST [Suspect]
     Active Substance: TRAVOPROST

REACTIONS (3)
  - Photophobia [None]
  - Eye irritation [None]
  - Ocular hyperaemia [None]
